FAERS Safety Report 25872319 (Version 1)
Quarter: 2025Q4

REPORT INFORMATION
  Report Type: Spontaneous
  Country: EU (occurrence: EU)
  Receive Date: 20251002
  Receipt Date: 20251002
  Transmission Date: 20260118
  Serious: Yes (Death, Other)
  Sender: CHEPLAPHARM
  Company Number: None

PATIENT
  Age: 80 Year
  Sex: Male
  Weight: 63 kg

DRUGS (13)
  1. BROMAZEPAM [Suspect]
     Active Substance: BROMAZEPAM
     Indication: Depression
     Route: 048
     Dates: start: 20250822
  2. QUETIAPINE [Suspect]
     Active Substance: QUETIAPINE
     Indication: Depression
     Route: 048
     Dates: start: 20250822
  3. ZUCLOPENTHIXOL [Suspect]
     Active Substance: ZUCLOPENTHIXOL
     Indication: Schizophrenia
     Dosage: EVENING TREATMENT
     Route: 048
     Dates: start: 20250822
  4. TROPATEPINE HYDROCHLORIDE [Suspect]
     Active Substance: TROPATEPINE HYDROCHLORIDE
     Indication: Parkinson^s disease
     Route: 048
     Dates: start: 20250822
  5. LANSOPRAZOLE [Suspect]
     Active Substance: LANSOPRAZOLE
     Indication: Dyspepsia
     Route: 048
     Dates: start: 20250822
  6. MIRTAZAPINE [Suspect]
     Active Substance: MIRTAZAPINE
     Indication: Depression
     Route: 048
     Dates: start: 20250822
  7. APIXABAN [Suspect]
     Active Substance: APIXABAN
     Dosage: MORNING?(HIS LONG-TERM TREATMENTS) TIAPRIDE 100 MG, VALPROIC ACID LP 500 MG, PARAFFIN, LERCANIDI...
     Dates: start: 20250822
  8. PAROXETINE [Suspect]
     Active Substance: PAROXETINE
     Dosage: EVENING
     Dates: start: 20250822
  9. TIAPRIDE [Concomitant]
     Active Substance: TIAPRIDE
     Dosage: MORNING (HIS LONG-TERM TREATMENTS) TIAPRIDE 100 MG, VALPROIC ACID LP 500 MG, PARAFFIN, LERCANIDIP...
     Dates: start: 20250822
  10. Valproic acid LP [Concomitant]
     Dosage: MORNING?(HIS LONG-TERM TREATMENTS) TIAPRIDE 100 MG, VALPROIC ACID LP 500 MG, PARAFFIN, LERCANIDI...
     Dates: start: 20250822
  11. PARAFFIN [Concomitant]
     Active Substance: PARAFFIN
  12. LERCANIDIPINE [Concomitant]
     Active Substance: LERCANIDIPINE
     Dosage: DAILY DOSE: 10 MILLIGRAM
  13. ATENOLOL [Concomitant]
     Active Substance: ATENOLOL
     Dosage: DAILY DOSE: 50 MILLIGRAM
     Dates: start: 20250822

REACTIONS (8)
  - Medication error [Fatal]
  - Depressed level of consciousness [Fatal]
  - Hypothermia [Unknown]
  - Haemorrhage [Unknown]
  - Diarrhoea [Unknown]
  - Hallucination [Unknown]
  - Muscular weakness [Unknown]
  - Scrotal irritation [Unknown]

NARRATIVE: CASE EVENT DATE: 20250822
